FAERS Safety Report 6383220-9 (Version None)
Quarter: 2009Q3

REPORT INFORMATION
  Report Type: 
  Country: None (occurrence: None)
  Receive Date: 20090929
  Receipt Date: 20090914
  Transmission Date: 20100115
  Serious: Yes (Hospitalization, Other)
  Sender: FDA-Public Use
  Company Number: 2009AL002550

PATIENT
  Age: 45 Year
  Sex: Female

DRUGS (1)
  1. DIGOXIN [Suspect]
     Indication: ATRIAL FIBRILLATION
     Dosage: 0.25MG, DAILY, PO
     Route: 048
     Dates: start: 20020719, end: 20050719

REACTIONS (19)
  - AORTIC VALVE DISEASE [None]
  - ARTHRALGIA [None]
  - ATRIAL FIBRILLATION [None]
  - BLOOD PRESSURE SYSTOLIC INCREASED [None]
  - CEREBROVASCULAR ACCIDENT [None]
  - CHEST DISCOMFORT [None]
  - CONTUSION [None]
  - DYSPHAGIA [None]
  - DYSPNOEA [None]
  - EJECTION FRACTION DECREASED [None]
  - EMBOLISM [None]
  - FALL [None]
  - HEMIPARESIS [None]
  - INJURY [None]
  - MALAISE [None]
  - MENTAL STATUS CHANGES [None]
  - PALPITATIONS [None]
  - PERIPHERAL ISCHAEMIA [None]
  - URINARY TRACT INFECTION [None]
